FAERS Safety Report 4702211-4 (Version None)
Quarter: 2005Q2

REPORT INFORMATION
  Report Type: 
  Country: None (occurrence: None)
  Receive Date: 20050629
  Receipt Date: 20050617
  Transmission Date: 20051028
  Serious: Yes (Other)
  Sender: FDA-Public Use
  Company Number: PHBS2005BE08904

PATIENT
  Age: 78 Year
  Sex: Female

DRUGS (6)
  1. AREDIA [Suspect]
     Indication: MULTIPLE MYELOMA
     Route: 042
     Dates: end: 20021007
  2. AREDIA [Suspect]
     Dosage: 60 MG, QMO
     Route: 042
     Dates: start: 20050401
  3. VINCRISTINE + ADRIAMYCIN + DEXAMETHASONE [Concomitant]
     Route: 065
  4. ALKERAN [Concomitant]
     Route: 065
  5. PREDNISOLONE [Concomitant]
     Route: 065
  6. ZOMETA [Suspect]
     Indication: MULTIPLE MYELOMA
     Route: 042
     Dates: start: 20021104, end: 20050401

REACTIONS (6)
  - ASEPTIC NECROSIS BONE [None]
  - BONE DISORDER [None]
  - OSTEOMYELITIS CHRONIC [None]
  - SINUS DISORDER [None]
  - SINUSITIS [None]
  - TOOTH LOSS [None]
